FAERS Safety Report 5411290-0 (Version None)
Quarter: 2007Q3

REPORT INFORMATION
  Report Type: 
  Country: None (occurrence: None)
  Receive Date: 20070810
  Receipt Date: 20070802
  Transmission Date: 20080115
  Serious: Yes (Other)
  Sender: FDA-Public Use
  Company Number: GB-ROCHE-509969

PATIENT
  Sex: Female

DRUGS (11)
  1. ORLISTAT [Suspect]
     Indication: DRUG USE FOR UNKNOWN INDICATION
     Route: 048
     Dates: start: 20060601, end: 20070211
  2. GLUCOPHAGE [Interacting]
     Indication: DRUG USE FOR UNKNOWN INDICATION
     Dosage: REPORTED AS GLUCOPHAGE SR.
     Route: 048
     Dates: start: 20060509
  3. AMITRIPTYLINE HCL [Concomitant]
     Indication: DRUG USE FOR UNKNOWN INDICATION
  4. ASPIRIN [Concomitant]
     Indication: DRUG USE FOR UNKNOWN INDICATION
  5. BENDROFLUAZIDE [Concomitant]
     Indication: DRUG USE FOR UNKNOWN INDICATION
  6. DICLOFENAC [Concomitant]
     Indication: DRUG USE FOR UNKNOWN INDICATION
  7. LANSOPRAZOLE [Concomitant]
     Indication: DRUG USE FOR UNKNOWN INDICATION
  8. LEVEMIR [Concomitant]
     Indication: DRUG USE FOR UNKNOWN INDICATION
  9. MS CONTIN [Concomitant]
     Indication: DRUG USE FOR UNKNOWN INDICATION
  10. PERINDOPRIL ERBUMINE [Concomitant]
     Indication: DRUG USE FOR UNKNOWN INDICATION
  11. ZOPICLONE [Concomitant]
     Indication: DRUG USE FOR UNKNOWN INDICATION

REACTIONS (2)
  - CONSTIPATION [None]
  - DRUG INTERACTION [None]
